FAERS Safety Report 6590749-7 (Version None)
Quarter: 2010Q1

REPORT INFORMATION
  Report Type: 
  Country: None (occurrence: None)
  Receive Date: 20100219
  Receipt Date: 20100217
  Transmission Date: 20100710
  Serious: Yes (Hospitalization)
  Sender: FDA-Public Use
  Company Number: US-GILEAD-2010-0027142

PATIENT
  Sex: Female
  Weight: 99.88 kg

DRUGS (17)
  1. LETAIRIS [Suspect]
     Indication: PULMONARY ARTERIAL HYPERTENSION
     Route: 048
     Dates: start: 20091123
  2. DIGOXIN [Concomitant]
  3. LISINOPRIL [Concomitant]
  4. SIMVASTATIN [Concomitant]
  5. ISOSORBIDE MN [Concomitant]
  6. QUESTRAN [Concomitant]
  7. METOPROLOL TARTRATE [Concomitant]
  8. FUROSEMIDE [Concomitant]
  9. WARFARIN [Concomitant]
  10. METOLAZONE [Concomitant]
  11. TETRAHYDROZOLINE [Concomitant]
  12. ALLOPURINOL [Concomitant]
  13. GABAPENTIN [Concomitant]
  14. TYLENOL-500 [Concomitant]
  15. LOMOTIL [Concomitant]
  16. POT CHLORIDE [Concomitant]
  17. MAG-OX [Concomitant]

REACTIONS (1)
  - SYNCOPE [None]
